FAERS Safety Report 7831480-7 (Version None)
Quarter: 2011Q4

REPORT INFORMATION
  Report Type: 
  Country: None (occurrence: None)
  Receive Date: 20111021
  Receipt Date: 20111021
  Transmission Date: 20120403
  Serious: Yes (Other)
  Sender: FDA-Public Use
  Company Number: None

PATIENT
  Age: 39 Year
  Sex: Male

DRUGS (3)
  1. VASANT KUSUMAKAR RAS WGOLD+PEARL [Suspect]
     Indication: ASTHENIA
     Dosage: 1 PILL
     Route: 048
     Dates: start: 20110101, end: 20110315
  2. VASANT KUSUMAKAR RAS WGOLD+PEARL [Suspect]
     Indication: DIABETES MELLITUS
     Dosage: 1 PILL
     Route: 048
     Dates: start: 20110101, end: 20110315
  3. MAHASHAKTI RASAYAN [Concomitant]
     Indication: ASTHENIA
     Dosage: 1 PILL
     Route: 048
     Dates: start: 20110101, end: 20110315

REACTIONS (1)
  - BLOOD LEAD INCREASED [None]
